FAERS Safety Report 11305812 (Version 1)
Quarter: 2015Q3

REPORT INFORMATION
  Report Type: Spontaneous
  Country: US (occurrence: US)
  Receive Date: 20150723
  Receipt Date: 20150723
  Transmission Date: 20151125
  Serious: Yes (Other)
  Sender: FDA-Public Use
  Company Number: US-ROCHE-1606486

PATIENT
  Sex: Female

DRUGS (4)
  1. HERCEPTIN [Suspect]
     Active Substance: TRASTUZUMAB
     Route: 065
     Dates: start: 201501
  2. PERJETA [Suspect]
     Active Substance: PERTUZUMAB
     Indication: BREAST CANCER
     Route: 065
     Dates: start: 201501
  3. HERCEPTIN [Suspect]
     Active Substance: TRASTUZUMAB
     Indication: BREAST CANCER
     Dosage: STARTED 7 YEARS AGO
     Route: 065
  4. TAXOL [Suspect]
     Active Substance: PACLITAXEL
     Indication: BREAST CANCER
     Dosage: STOPPED 3-4 MONTHS AGO
     Route: 065
     Dates: start: 201501

REACTIONS (8)
  - Dyspepsia [Unknown]
  - Decreased appetite [Unknown]
  - Tongue ulceration [Unknown]
  - Breast cancer recurrent [Not Recovered/Not Resolved]
  - Alopecia [Unknown]
  - Abdominal pain [Unknown]
  - Diarrhoea [Unknown]
  - Weight decreased [Not Recovered/Not Resolved]
